FAERS Safety Report 19558735 (Version 1)
Quarter: 2021Q3

REPORT INFORMATION
  Report Type: Spontaneous
  Country: US (occurrence: US)
  Receive Date: 20210714
  Receipt Date: 20210714
  Transmission Date: 20211014
  Serious: No
  Sender: FDA-Public Use
  Company Number: US-SK LIFE SCIENCE, INC-SKPVG-2020-000249

PATIENT

DRUGS (18)
  1. XCOPRI [Suspect]
     Active Substance: CENOBAMATE
     Indication: SEIZURE
     Dosage: 12.5 MG QD (WEEK 1 TO 2)
     Route: 048
     Dates: start: 20200824
  2. XCOPRI [Suspect]
     Active Substance: CENOBAMATE
     Dosage: 25 MILLIGRAM, QD (WEEK 3 TO 4)
     Route: 048
     Dates: start: 2020
  3. XCOPRI [Suspect]
     Active Substance: CENOBAMATE
     Dosage: 150 MILLIGRAM, QD (WEEK 9?10)
     Route: 048
     Dates: start: 2020
  4. ARICEPT [Suspect]
     Active Substance: DONEPEZIL HYDROCHLORIDE
     Indication: SEIZURE
     Dosage: 10 MILLIGRAM  AT NIGHT
     Route: 065
  5. VITAMIN D                          /00107901/ [Concomitant]
     Active Substance: ERGOCALCIFEROL
     Indication: PRODUCT USED FOR UNKNOWN INDICATION
     Dosage: 1.25 MILLIGRAM  ( 50,000 UNITS), 2 TIMES/WK (TUESDAY AND FRIDAY)
     Route: 065
  6. ZONEGRAN [Suspect]
     Active Substance: ZONISAMIDE
     Dosage: 300 MILLIGRAM, QD AT NIGHT
     Route: 065
     Dates: start: 2020
  7. VIMPAT [Suspect]
     Active Substance: LACOSAMIDE
     Indication: SEIZURE
     Dosage: 250 MILLIGRAM, BID (MORNING AND NIGHT)
     Route: 065
  8. XCOPRI [Suspect]
     Active Substance: CENOBAMATE
     Dosage: 100 MILLIGRAM, QD (WEEK 7 TO 8)
     Route: 048
     Dates: start: 2020
  9. ZONEGRAN [Suspect]
     Active Substance: ZONISAMIDE
     Dosage: 100 MILLIGRAM, QD
     Route: 065
     Dates: start: 2020
  10. DIVALPROEX [Concomitant]
     Active Substance: DIVALPROEX SODIUM
     Indication: PRODUCT USED FOR UNKNOWN INDICATION
     Dosage: 1000 MILLIGRAM, BID (MORNING AND NIGHT)
     Route: 065
  11. XCOPRI [Suspect]
     Active Substance: CENOBAMATE
     Dosage: 50 MILLIGRAM, QD (5 TO 6)
     Route: 048
     Dates: start: 2020
  12. ZONEGRAN [Suspect]
     Active Substance: ZONISAMIDE
     Indication: SEIZURE
     Dosage: 200 MG IN MORNING AND 400 MG AT NIGHT.
     Route: 065
  13. ZONEGRAN [Suspect]
     Active Substance: ZONISAMIDE
     Dosage: 100 MG IN THE MORNING AND 400 MG AT NIGHT
     Route: 065
     Dates: start: 20200824
  14. ZONEGRAN [Suspect]
     Active Substance: ZONISAMIDE
     Dosage: 400 MILLIGRAM, QD AT NIGHT
     Route: 065
     Dates: start: 2020
  15. ZOLOFT [Concomitant]
     Active Substance: SERTRALINE HYDROCHLORIDE
     Indication: PRODUCT USED FOR UNKNOWN INDICATION
     Dosage: 100 MILLIGRAM, BID (MORNING AND NIGHT)
     Route: 065
  16. ZONEGRAN [Suspect]
     Active Substance: ZONISAMIDE
     Dosage: 200 MILLIGRAM, QD
     Route: 065
     Dates: start: 2020
  17. LEVOTHYROXINE. [Concomitant]
     Active Substance: LEVOTHYROXINE
     Indication: PRODUCT USED FOR UNKNOWN INDICATION
     Dosage: 100 MICROGRAM, QD IN THE MORNING
     Route: 065
  18. CARVEDILOL. [Concomitant]
     Active Substance: CARVEDILOL
     Indication: PRODUCT USED FOR UNKNOWN INDICATION
     Dosage: 3.125 MILLIGRAM, BID (MORNING AND NIGHT)
     Route: 065

REACTIONS (2)
  - Fatigue [Recovering/Resolving]
  - Hypersomnia [Recovering/Resolving]

NARRATIVE: CASE EVENT DATE: 20200827
